FAERS Safety Report 16190326 (Version 2)
Quarter: 2019Q3

REPORT INFORMATION
  Report Type: Spontaneous
  Country: US (occurrence: US)
  Receive Date: 20190412
  Receipt Date: 20190701
  Transmission Date: 20191004
  Serious: No
  Sender: FDA-Public Use
  Company Number: US-PFIZER INC-2019155451

PATIENT
  Age: 83 Year
  Sex: Male
  Weight: 92.99 kg

DRUGS (1)
  1. LYRICA [Suspect]
     Active Substance: PREGABALIN
     Dosage: 6 CAPSULES, DAILY (300 MG)
     Route: 048

REACTIONS (1)
  - Insomnia [Unknown]
